FAERS Safety Report 21726014 (Version 1)
Quarter: 2022Q4

REPORT INFORMATION
  Report Type: Spontaneous
  Country: US (occurrence: US)
  Receive Date: 20221214
  Receipt Date: 20221214
  Transmission Date: 20230113
  Serious: No
  Sender: FDA-Public Use
  Company Number: US-ViiV Healthcare Limited-89017

PATIENT
  Age: 27 Year
  Sex: Male

DRUGS (2)
  1. RILPIVIRINE [Suspect]
     Active Substance: RILPIVIRINE
     Indication: Product used for unknown indication
     Dosage: UNK, 600-MG/900-MG
     Route: 065
     Dates: start: 20221026, end: 20221129
  2. CABOTEGRAVIR [Suspect]
     Active Substance: CABOTEGRAVIR
     Indication: Product used for unknown indication
     Dosage: UNK, 600-MG/900-MG
     Route: 065
     Dates: start: 20221026, end: 20221129

REACTIONS (4)
  - Gingival bleeding [Recovered/Resolved]
  - Mouth swelling [Recovered/Resolved]
  - Gingival discolouration [Recovered/Resolved]
  - Myalgia [Recovered/Resolved]

NARRATIVE: CASE EVENT DATE: 20221124
